FAERS Safety Report 14692707 (Version 1)
Quarter: 2018Q1

REPORT INFORMATION
  Report Type: Report from Study
  Country: US (occurrence: US)
  Receive Date: 20180329
  Receipt Date: 20180329
  Transmission Date: 20180509
  Serious: Yes (Other)
  Sender: FDA-Public Use
  Company Number: US-CIPLA LTD.-2018US13095

PATIENT

DRUGS (2)
  1. CISPLATIN. [Suspect]
     Active Substance: CISPLATIN
     Indication: NEOPLASM MALIGNANT
     Dosage: 25 MG/M2, ON DAYS 1, 8 AND 15 OF A 28-DAY CYCLE
     Route: 042
  2. GEMCITABINE [Suspect]
     Active Substance: GEMCITABINE\GEMCITABINE HYDROCHLORIDE
     Indication: NEOPLASM MALIGNANT
     Dosage: 1000 MG/M2, ON DAYS 1, 8 AND 15 OF A 28-DAY CYCLE
     Route: 042

REACTIONS (2)
  - Non-cardiac chest pain [Unknown]
  - Abdominal pain [Unknown]
